FAERS Safety Report 5230938-7 (Version None)
Quarter: 2007Q1

REPORT INFORMATION
  Report Type: 
  Country: None (occurrence: None)
  Receive Date: 20070206
  Receipt Date: 20070131
  Transmission Date: 20070707
  Serious: Yes (Hospitalization)
  Sender: FDA-Public Use
  Company Number: GB-GLAXOSMITHKLINE-B0360453A

PATIENT
  Sex: Male

DRUGS (4)
  1. PAROXETINE HYDROCHLORIDE [Suspect]
     Route: 065
     Dates: start: 19961101, end: 20021001
  2. DIAZEPAM [Suspect]
     Dosage: 5MG AS REQUIRED
     Route: 065
  3. THIORIDAZINE HCL [Concomitant]
     Dosage: 25MG TWICE PER DAY
     Route: 065
  4. ZOPICLONE [Concomitant]
     Dosage: 7.5MG AT NIGHT
     Route: 065

REACTIONS (6)
  - ANXIETY [None]
  - DEPRESSION [None]
  - DRUG WITHDRAWAL SYNDROME [None]
  - INSOMNIA [None]
  - OVERDOSE [None]
  - SUICIDAL IDEATION [None]
